FAERS Safety Report 7266030-X (Version None)
Quarter: 2011Q1

REPORT INFORMATION
  Report Type: 
  Country: None (occurrence: None)
  Receive Date: 20110131
  Receipt Date: 20110120
  Transmission Date: 20110831
  Serious: Yes (Hospitalization, Other)
  Sender: FDA-Public Use
  Company Number: US-ASTRAZENECA-2011SE03448

PATIENT
  Age: 90 Year
  Sex: Male

DRUGS (4)
  1. SEROQUEL [Suspect]
     Route: 048
     Dates: start: 20110101
  2. SEROQUEL [Suspect]
     Indication: INSOMNIA
     Route: 048
     Dates: start: 20110106
  3. SEROQUEL [Suspect]
     Route: 048
     Dates: start: 20110101
  4. SEROQUEL [Suspect]
     Indication: AGITATION
     Route: 048
     Dates: start: 20110106

REACTIONS (4)
  - LARYNGEAL OEDEMA [None]
  - DYSPHAGIA [None]
  - RESPIRATORY DISTRESS [None]
  - CERVICAL VERTEBRAL FRACTURE [None]
